FAERS Safety Report 7715281-6 (Version None)
Quarter: 2011Q3

REPORT INFORMATION
  Report Type: 
  Country: None (occurrence: None)
  Receive Date: 20110829
  Receipt Date: 20110819
  Transmission Date: 20111222
  Serious: Yes (Other)
  Sender: FDA-Public Use
  Company Number: JP-B.I. PHARMACEUTICALS,INC./RIDGEFIELD-2011-BP-20882YA

PATIENT
  Age: 75 Year
  Sex: Male

DRUGS (8)
  1. ETODOLAC [Concomitant]
     Route: 048
     Dates: start: 20110815
  2. DECADRON [Concomitant]
     Route: 048
     Dates: start: 20110815
  3. RACOL (NUTRIENTS NOS) [Concomitant]
     Route: 048
     Dates: start: 20110815
  4. MAGMITT (MAGNESIUM OXIDE) [Concomitant]
     Route: 048
     Dates: start: 20110815
  5. PURSENNID (SENNOSIDE A + B) [Concomitant]
     Route: 048
     Dates: start: 20110815
  6. FAMOTIDINE [Concomitant]
     Dates: start: 20110815
  7. TAMSULOSIN HCL [Suspect]
     Route: 048
     Dates: start: 20110815
  8. MORPHINE HYCDOCHLORIDE (MORPHINE HYDROCHLORIDE) [Concomitant]
     Route: 048
     Dates: start: 20110815

REACTIONS (1)
  - URINARY RETENTION [None]
